FAERS Safety Report 18891745 (Version 1)
Quarter: 2021Q1

REPORT INFORMATION
  Report Type: Report from Study
  Country: CA (occurrence: CA)
  Receive Date: 20210215
  Receipt Date: 20210215
  Transmission Date: 20210420
  Serious: Yes (Other)
  Sender: FDA-Public Use
  Company Number: CA-EMD SERONO-E2B_80067058

PATIENT
  Age: 69 Year
  Sex: Female

DRUGS (2)
  1. REBIF [Suspect]
     Active Substance: INTERFERON BETA-1A
     Indication: MULTIPLE SCLEROSIS
     Dosage: 132 (UNITS UNSPECIFIED) MULTI?DOSE CARTRIDGES
     Route: 058
     Dates: start: 20000101
  2. REBIF [Suspect]
     Active Substance: INTERFERON BETA-1A
     Dosage: 132 (UNITS UNSPECIFIED) MULTI?DOSE CARTRIDGES
     Route: 058
     Dates: start: 20050930

REACTIONS (7)
  - Injection site atrophy [Not Recovered/Not Resolved]
  - Hip arthroplasty [Recovered/Resolved]
  - Abdominal pain upper [Recovering/Resolving]
  - Magnetic resonance imaging abnormal [Unknown]
  - Abdominal distension [Not Recovered/Not Resolved]
  - Incontinence [Unknown]
  - Influenza like illness [Recovering/Resolving]

NARRATIVE: CASE EVENT DATE: 20170106
